FAERS Safety Report 12544857 (Version 1)
Quarter: 2016Q3

REPORT INFORMATION
  Report Type: Spontaneous
  Country: DE (occurrence: DE)
  Receive Date: 20160711
  Receipt Date: 20160711
  Transmission Date: 20161109
  Serious: Yes (Hospitalization, Other)
  Sender: FDA-Public Use
  Company Number: DE-PFIZER INC-2015016094

PATIENT
  Age: 61 Year
  Sex: Male

DRUGS (18)
  1. HYDROCORTISONE. [Concomitant]
     Active Substance: HYDROCORTISONE
     Dosage: 15 MG, 1X/DAY (1-0-0)
  2. SPIRONOLACTONE. [Concomitant]
     Active Substance: SPIRONOLACTONE
     Dosage: UNK
  3. EFEROX [Concomitant]
     Active Substance: LEVOTHYROXINE SODIUM
     Dosage: 100 UG, 1X/DAY (1-0-0)
  4. INSPRA [Concomitant]
     Active Substance: EPLERENONE
  5. DOSTINEX [Suspect]
     Active Substance: CABERGOLINE
     Indication: HYPERPROLACTINAEMIA
     Dosage: UNK, THREE TIMES A WEEK
  6. FURORESE [Concomitant]
     Active Substance: FUROSEMIDE
     Indication: FLUID RETENTION
     Dosage: 40 MG, 2X/DAY (1-1-0)
     Dates: start: 2010
  7. KALINOR-BRAUSETABLETTEN [Concomitant]
     Active Substance: POTASSIUM CARBONATE\POTASSIUM CITRATE
     Dosage: 1 DF, 2X/DAY (1-1-1)
  8. DOSTINEX [Suspect]
     Active Substance: CABERGOLINE
     Indication: PROLACTIN-PRODUCING PITUITARY TUMOUR
     Dosage: 1 MG, 2X/WEEK
     Dates: start: 1984
  9. KEPPRA [Concomitant]
     Active Substance: LEVETIRACETAM
     Dosage: 1000 MG, UNK (1-0-1)
  10. L-THYROXIN [Concomitant]
     Active Substance: LEVOTHYROXINE SODIUM
  11. TESTOSTERONE. [Concomitant]
     Active Substance: TESTOSTERONE
     Dosage: 250 MG, EVERY 14 DAYS
     Route: 030
  12. PANTOZOL [Concomitant]
     Active Substance: PANTOPRAZOLE SODIUM
     Dosage: 40 MG, 1X/DAY (1-0-0)
  13. ALLOPURINOL. [Concomitant]
     Active Substance: ALLOPURINOL
     Dosage: UNK
  14. ZENTROPIL [Concomitant]
     Active Substance: PHENYTOIN
     Dosage: 100 MG, 2X/DAY (1-0-1)
  15. DOSTINEX [Suspect]
     Active Substance: CABERGOLINE
     Dosage: UNK, 1X/DAY
  16. FURORESE [Concomitant]
     Active Substance: FUROSEMIDE
     Dosage: 40 MG, 1X/DAY (1-0-0)
     Dates: start: 20160630
  17. RAMIPRIL. [Concomitant]
     Active Substance: RAMIPRIL
     Dosage: 5 UNK, 1X/DAY (IN THE MORNING)
  18. KALINOR-BRAUSETABLETTEN [Concomitant]
     Active Substance: POTASSIUM CARBONATE\POTASSIUM CITRATE
     Indication: BLOOD POTASSIUM DECREASED
     Dosage: 1 DF, 2X/DAY (1-1-0)

REACTIONS (11)
  - Hypokalaemia [Not Recovered/Not Resolved]
  - Blood thyroid stimulating hormone decreased [Recovering/Resolving]
  - Local swelling [Unknown]
  - Generalised tonic-clonic seizure [Recovering/Resolving]
  - Product use issue [Unknown]
  - Encephalopathy [Recovering/Resolving]
  - Oedema peripheral [Not Recovered/Not Resolved]
  - Dehydration [Recovering/Resolving]
  - Meningitis viral [Recovering/Resolving]
  - Blood prolactin abnormal [Not Recovered/Not Resolved]
  - Influenza A virus test [Recovering/Resolving]
